FAERS Safety Report 21617710 (Version 2)
Quarter: 2022Q4

REPORT INFORMATION
  Report Type: Report from Study
  Country: PR (occurrence: PR)
  Receive Date: 20221119
  Receipt Date: 20221217
  Transmission Date: 20230113
  Serious: No
  Sender: FDA-Public Use
  Company Number: PR-ABBVIE-4206359

PATIENT
  Sex: Female
  Weight: 48.08 kg

DRUGS (1)
  1. VENCLEXTA [Suspect]
     Active Substance: VENETOCLAX
     Indication: Acute myeloid leukaemia
     Dosage: THE ONSET DATE OF CONSTIPATION, NAUSEA, STOMACH DISCOMFORT WAS 2022.
     Route: 048
     Dates: start: 20220427

REACTIONS (3)
  - Abdominal discomfort [Unknown]
  - Nausea [Unknown]
  - Constipation [Unknown]
